FAERS Safety Report 8456210 (Version 4)
Quarter: 2012Q4

REPORT INFORMATION
  Report Type: 
  Country: US (occurrence: US)
  Receive Date: 20120313
  Receipt Date: 20120831
  Transmission Date: 20130627
  Serious: Yes (Hospitalization, Disabling)
  Sender: FDA-Public Use
  Company Number: US-VALEANT-2012VX001041

PATIENT
  Age: 73 Year
  Sex: Male
  Weight: 89 kg

DRUGS (7)
  1. EDECRIN [Suspect]
     Indication: HYPERTENSION
     Route: 048
     Dates: start: 20120118, end: 20120120
  2. EDECRIN [Suspect]
     Indication: EDEMA
     Route: 048
     Dates: start: 20120118, end: 20120120
  3. SYNTHROID [Concomitant]
     Indication: THYROID DISORDER
     Route: 048
     Dates: start: 1969
  4. FINESTERIDE [Concomitant]
     Indication: PROSTATIC DISORDER
     Route: 048
     Dates: start: 2005
  5. CATAPRESS [Concomitant]
     Indication: BLOOD PRESSURE
     Route: 065
  6. AMLODIPINE [Concomitant]
     Indication: HYPERTENSION
     Route: 048
     Dates: start: 02010529
  7. ASPIRIN [Concomitant]
     Indication: PAROXYSMAL ATRIAL FIBRILLATION
     Route: 048
     Dates: start: 20120529

REACTIONS (11)
  - Ototoxicity [Recovering/Resolving]
  - Toxicity to various agents [Recovering/Resolving]
  - Inner ear disorder [Recovering/Resolving]
  - Balance disorder [Recovering/Resolving]
  - Ear pain [Recovering/Resolving]
  - Dizziness [Recovering/Resolving]
  - Vertigo [Recovered/Resolved]
  - Headache [Recovering/Resolving]
  - Palpitations [Unknown]
  - Activities of daily living impaired [Not Recovered/Not Resolved]
  - Neuritis [Unknown]
